FAERS Safety Report 5700258-2 (Version None)
Quarter: 2008Q2

REPORT INFORMATION
  Report Type: 
  Country: None (occurrence: None)
  Receive Date: 20080408
  Receipt Date: 20080408
  Transmission Date: 20081010
  Serious: Yes (Other)
  Sender: FDA-Public Use
  Company Number: None

PATIENT
  Age: 56 Year
  Sex: Female
  Weight: 68.0396 kg

DRUGS (1)
  1. ASPERCREME HEAT GEL   MENTHOL 10%   CHATTEM [Suspect]
     Indication: MYALGIA
     Dosage: SMALL AMOUNT, 1 TSP. USED ONCE TOP
     Route: 061
     Dates: start: 20080406, end: 20080406

REACTIONS (1)
  - APPLICATION SITE IRRITATION [None]
